FAERS Safety Report 6525861-1 (Version None)
Quarter: 2010Q1

REPORT INFORMATION
  Report Type: 
  Country: None (occurrence: None)
  Receive Date: 20100104
  Receipt Date: 20091223
  Transmission Date: 20100710
  Serious: Yes (Life-Threatening)
  Sender: FDA-Public Use
  Company Number: B0621438A

PATIENT
  Age: 32 Year
  Sex: Female
  Weight: 80 kg

DRUGS (6)
  1. RELENZA [Suspect]
     Indication: DRUG USE FOR UNKNOWN INDICATION
     Route: 065
  2. METHYLPREDNISOLONE [Concomitant]
  3. VANCOMYCIN [Concomitant]
  4. MERONEM [Concomitant]
  5. TACROLIMUS [Concomitant]
  6. VALGANCICLOVIR HCL [Concomitant]

REACTIONS (1)
  - HEPATITIS [None]
